FAERS Safety Report 9284241 (Version 1)
Quarter: 2013Q2

REPORT INFORMATION
  Report Type: Spontaneous
  Country: US (occurrence: US)
  Receive Date: 20130510
  Receipt Date: 20130510
  Transmission Date: 20140414
  Serious: Yes (Death, Other)
  Sender: FDA-Public Use
  Company Number: US-BAXTER-2013BAX016703

PATIENT
  Sex: Male

DRUGS (1)
  1. DIANEAL LOW CALCIUM [Suspect]
     Indication: PERITONEAL DIALYSIS
     Route: 033
     Dates: start: 20130410, end: 20130501

REACTIONS (4)
  - Cardiac disorder [Fatal]
  - Cardiac failure [Fatal]
  - Atrial fibrillation [Unknown]
  - Multimorbidity [Unknown]
